FAERS Safety Report 10506693 (Version 1)
Quarter: 2014Q4

REPORT INFORMATION
  Report Type: Spontaneous
  Country: US (occurrence: None)
  Receive Date: 20141008
  Receipt Date: 20141008
  Transmission Date: 20150528
  Serious: Yes (Death)
  Sender: FDA-Public Use
  Company Number: None

PATIENT
  Age: 54 Year
  Sex: Female
  Weight: 52.3 kg

DRUGS (18)
  1. OFLOXACIN. [Concomitant]
     Active Substance: OFLOXACIN
  2. ONDANSETRON [Concomitant]
     Active Substance: ONDANSETRON
  3. TRIAMINOLONE [Concomitant]
  4. NORCO [Concomitant]
     Active Substance: ACETAMINOPHEN\HYDROCODONE BITARTRATE
  5. FLUNISOLIDE. [Concomitant]
     Active Substance: FLUNISOLIDE
  6. BACITRACIN. [Concomitant]
     Active Substance: BACITRACIN
  7. FENTANYL. [Concomitant]
     Active Substance: FENTANYL
  8. GABAPENTIN. [Concomitant]
     Active Substance: GABAPENTIN
  9. POLYETHYLENE [Concomitant]
     Active Substance: HIGH DENSITY POLYETHYLENE
  10. CETUXIMAB [Suspect]
     Active Substance: CETUXIMAB
     Indication: SQUAMOUS CELL CARCINOMA OF HEAD AND NECK
     Dates: start: 20140903, end: 20140903
  11. PAZOPANIB [Suspect]
     Active Substance: PAZOPANIB
     Indication: SQUAMOUS CELL CARCINOMA OF HEAD AND NECK
     Dates: start: 20140903, end: 20140910
  12. FLUOXETINE [Concomitant]
     Active Substance: FLUOXETINE\FLUOXETINE HYDROCHLORIDE
  13. DILAUDID [Concomitant]
     Active Substance: HYDROMORPHONE HYDROCHLORIDE
  14. LEVALBUTEROL [Concomitant]
     Active Substance: LEVALBUTEROL
  15. MORPHINE [Concomitant]
     Active Substance: MORPHINE
  16. PROCHLORPERAZINE. [Concomitant]
     Active Substance: PROCHLORPERAZINE
  17. BENZONATATE. [Concomitant]
     Active Substance: BENZONATATE
  18. LEVAQUINE [Concomitant]

REACTIONS (10)
  - Hypercalcaemia [None]
  - Disease progression [None]
  - Tracheobronchitis [None]
  - Pyrexia [None]
  - Chills [None]
  - Flank pain [None]
  - Depression [None]
  - Hypokalaemia [None]
  - Chest discomfort [None]
  - Tracheitis [None]

NARRATIVE: CASE EVENT DATE: 20140907
